FAERS Safety Report 20473075 (Version 1)
Quarter: 2022Q1

REPORT INFORMATION
  Report Type: Spontaneous
  Country: FR (occurrence: FR)
  Receive Date: 20220215
  Receipt Date: 20220215
  Transmission Date: 20220424
  Serious: Yes (Other)
  Sender: FDA-Public Use
  Company Number: FR-CURIUM-2022000032

PATIENT
  Age: 61 Year
  Sex: Female

DRUGS (2)
  1. SODIUM IODIDE I-131 [Suspect]
     Active Substance: SODIUM IODIDE I-131
     Route: 065
  2. SODIUM IODIDE I-131 [Suspect]
     Active Substance: SODIUM IODIDE I-131
     Route: 065

REACTIONS (2)
  - Basedow^s disease [Unknown]
  - Hypothyroidism [Unknown]
